FAERS Safety Report 20838157 (Version 1)
Quarter: 2022Q2

REPORT INFORMATION
  Report Type: Spontaneous
  Country: US (occurrence: US)
  Receive Date: 20220517
  Receipt Date: 20220517
  Transmission Date: 20220720
  Serious: No
  Sender: FDA-Public Use
  Company Number: US-ALLERGAN-2209969US

PATIENT
  Age: 34 Year
  Sex: Female

DRUGS (1)
  1. KYBELLA [Suspect]
     Active Substance: DEOXYCHOLIC ACID
     Indication: Product used for unknown indication
     Dosage: 3 DF, SINGLE

REACTIONS (5)
  - Condition aggravated [Unknown]
  - Skin laxity [Unknown]
  - Injection site macule [Unknown]
  - Injection site rash [Unknown]
  - Injection site discolouration [Unknown]
